FAERS Safety Report 21499123 (Version 2)
Quarter: 2022Q4

REPORT INFORMATION
  Report Type: Spontaneous
  Country: US (occurrence: US)
  Receive Date: 20221024
  Receipt Date: 20221025
  Transmission Date: 20230113
  Serious: Yes (Other)
  Sender: FDA-Public Use
  Company Number: US-GILEAD-2022-0602283

PATIENT
  Age: 55 Year
  Sex: Male
  Weight: 97.6 kg

DRUGS (1)
  1. TECARTUS [Suspect]
     Active Substance: BREXUCABTAGENE AUTOLEUCEL
     Indication: Mantle cell lymphoma
     Dosage: UNK
     Route: 042
     Dates: start: 20220808, end: 20220808

REACTIONS (8)
  - Cytokine release syndrome [Unknown]
  - Pyrexia [Unknown]
  - Alanine aminotransferase [Unknown]
  - Fatigue [Unknown]
  - Malaise [Unknown]
  - Diarrhoea [Unknown]
  - Alanine aminotransferase [Unknown]
  - Tremor [Unknown]

NARRATIVE: CASE EVENT DATE: 20220811
